FAERS Safety Report 5129307-X (Version None)
Quarter: 2006Q4

REPORT INFORMATION
  Report Type: 
  Country: None (occurrence: None)
  Receive Date: 20061011
  Receipt Date: 20060926
  Transmission Date: 20070319
  Serious: Yes (Death, Hospitalization, Other)
  Sender: FDA-Public Use
  Company Number: 2006AL002976

PATIENT
  Age: 91 Year
  Sex: Female

DRUGS (5)
  1. DICLOFENAC SODIUM DELEYED-RELEASE TABLETS, 50 MG(PUREPAC) DICLOFENAC [Suspect]
     Indication: OSTEOARTHRITIS
  2. BUMETANIDE [Concomitant]
  3. IBUPROFEN [Concomitant]
  4. SPIRONOLACTONE [Concomitant]
  5. DIGOXIN [Concomitant]

REACTIONS (4)
  - BLOOD POTASSIUM INCREASED [None]
  - FALL [None]
  - RENAL FAILURE [None]
  - THERAPEUTIC AGENT TOXICITY [None]
